FAERS Safety Report 6610936-9 (Version None)
Quarter: 2010Q1

REPORT INFORMATION
  Report Type: 
  Country: None (occurrence: None)
  Receive Date: 20100222
  Receipt Date: 20100209
  Transmission Date: 20100710
  Serious: Yes (Other)
  Sender: FDA-Public Use
  Company Number: 006690

PATIENT
  Sex: Female
  Weight: 62 kg

DRUGS (3)
  1. KEPPRA [Suspect]
     Indication: EPILEPSY
     Dosage: 500 MG ORAL
     Route: 048
     Dates: start: 20071101, end: 20080110
  2. NEURONTIN [Suspect]
     Indication: EPILEPSY
     Dosage: 800 MG BID ORAL
     Route: 048
     Dates: start: 20061201, end: 20080120
  3. SPECIAFOLDINE [Concomitant]

REACTIONS (4)
  - CAESAREAN SECTION [None]
  - DRUG EXPOSURE DURING PREGNANCY [None]
  - PARTIAL SEIZURES [None]
  - PREGNANCY [None]
